FAERS Safety Report 22376165 (Version 1)
Quarter: 2023Q2

REPORT INFORMATION
  Report Type: Spontaneous
  Country: US (occurrence: US)
  Receive Date: 20230527
  Receipt Date: 20230527
  Transmission Date: 20230721
  Serious: No
  Sender: FDA-Public Use
  Company Number: US-PERRIGO-22US015014

PATIENT

DRUGS (2)
  1. MINOXIDIL [Suspect]
     Active Substance: MINOXIDIL
     Indication: Product used for unknown indication
     Dosage: UNKNOWN, QD
     Route: 061
     Dates: start: 202105, end: 2022
  2. MINOXIDIL [Suspect]
     Active Substance: MINOXIDIL
     Dosage: UNKNOWN AMOUNT AS LIQUID, QD
     Route: 061
     Dates: start: 2022, end: 2022

REACTIONS (2)
  - Wrong technique in product usage process [Unknown]
  - Incorrect dose administered [Unknown]

NARRATIVE: CASE EVENT DATE: 20220101
